FAERS Safety Report 5807823-2 (Version None)
Quarter: 2008Q3

REPORT INFORMATION
  Report Type: 
  Country: None (occurrence: None)
  Receive Date: 20080711
  Receipt Date: 20080702
  Transmission Date: 20090109
  Serious: Yes (Death, Hospitalization)
  Sender: FDA-Public Use
  Company Number: US-PFIZER INC-2008009336

PATIENT
  Sex: Female
  Weight: 52 kg

DRUGS (6)
  1. SUTENT [Suspect]
     Indication: HEAD AND NECK CANCER
     Route: 048
     Dates: start: 20071121, end: 20071226
  2. NEURONTIN [Concomitant]
     Route: 048
  3. OXYCODONE HCL [Concomitant]
     Route: 048
  4. PREDNISONE TAB [Concomitant]
  5. PRILOSEC [Concomitant]
  6. NEXIUM [Concomitant]

REACTIONS (2)
  - DEHYDRATION [None]
  - PNEUMONIA NECROTISING [None]
